FAERS Safety Report 5200956-3 (Version None)
Quarter: 2007Q1

REPORT INFORMATION
  Report Type: 
  Country: None (occurrence: None)
  Receive Date: 20070103
  Receipt Date: 20061220
  Transmission Date: 20070707
  Serious: Yes (Life-Threatening)
  Sender: FDA-Public Use
  Company Number: 2006SP007379

PATIENT
  Age: 72 Year
  Sex: Female
  Weight: 60 kg

DRUGS (7)
  1. TEMODAL [Suspect]
     Indication: OLIGODENDROGLIOMA
     Dosage: 75 MG /M2, QD,PO
     Route: 048
     Dates: start: 20061020, end: 20061114
  2. RADIOTHERAPY [Concomitant]
  3. BACTRIM [Concomitant]
  4. PREDONINE [Concomitant]
  5. ADALAT [Concomitant]
  6. NASEA OD [Concomitant]
  7. PRIMPERAN [Concomitant]

REACTIONS (1)
  - PULMONARY INFARCTION [None]
